FAERS Safety Report 6587714-2 (Version None)
Quarter: 2010Q1

REPORT INFORMATION
  Report Type: 
  Country: None (occurrence: None)
  Receive Date: 20100218
  Receipt Date: 20091123
  Transmission Date: 20100710
  Serious: No
  Sender: FDA-Public Use
  Company Number: A0816774A

PATIENT
  Age: 84 Year
  Sex: Male

DRUGS (7)
  1. COREG CR [Suspect]
     Indication: HYPERTENSION
     Dosage: 40MG PER DAY
     Route: 048
     Dates: start: 20091112
  2. ASACOL [Concomitant]
  3. DIOVAN [Concomitant]
  4. GLIPIZIDE [Concomitant]
  5. ASPIRIN [Concomitant]
  6. LORAZEPAM [Concomitant]
  7. SIMVASTATIN [Concomitant]

REACTIONS (6)
  - BLOOD GLUCOSE FLUCTUATION [None]
  - FAECAL INCONTINENCE [None]
  - FEELING HOT [None]
  - HYPERHIDROSIS [None]
  - VISUAL IMPAIRMENT [None]
  - VOMITING [None]
